FAERS Safety Report 7124574-5 (Version None)
Quarter: 2010Q4

REPORT INFORMATION
  Report Type: 
  Country: None (occurrence: None)
  Receive Date: 20101123
  Receipt Date: 20101123
  Transmission Date: 20110411
  Serious: No
  Sender: FDA-Public Use
  Company Number: None

PATIENT
  Sex: Female
  Weight: 97.0698 kg

DRUGS (1)
  1. DEPAKOTE [Suspect]
     Indication: BIPOLAR I DISORDER
     Dosage: 3 A DAY HS PO; 4 A DAY HS PO (LOST WEIGHT AFTER TAKEN OFF DRUG IN APROX. 10/2010)
     Route: 048
     Dates: end: 20101001

REACTIONS (4)
  - ATRIAL FIBRILLATION [None]
  - INSULIN RESISTANCE [None]
  - TACHYCARDIA [None]
  - WEIGHT INCREASED [None]
